FAERS Safety Report 26190393 (Version 1)
Quarter: 2025Q4

REPORT INFORMATION
  Report Type: Report from Study
  Country: CA (occurrence: CA)
  Receive Date: 20251223
  Receipt Date: 20251223
  Transmission Date: 20260118
  Serious: Yes (Life-Threatening, Other)
  Sender: BRISTOL-MYERS SQUIBB COMPANY
  Company Number: CA-BRISTOL-MYERS SQUIBB COMPANY-2025-170120

PATIENT
  Age: 69 Year
  Sex: Male
  Weight: 74.84 kg

DRUGS (3)
  1. ONUREG [Suspect]
     Active Substance: AZACITIDINE
     Indication: Acute myeloid leukaemia
     Dosage: DAILY FOR 14 DAYS, THEN 14 DAYS OFF
     Route: 048
     Dates: start: 20250922
  2. ONUREG [Suspect]
     Active Substance: AZACITIDINE
     Route: 048
     Dates: start: 20251020
  3. ONUREG [Suspect]
     Active Substance: AZACITIDINE
     Route: 048
     Dates: start: 20251130

REACTIONS (3)
  - Neutrophil count decreased [Not Recovered/Not Resolved]
  - Nausea [Recovered/Resolved]
  - Vomiting [Recovered/Resolved]

NARRATIVE: CASE EVENT DATE: 20250925
